FAERS Safety Report 11893397 (Version 2)
Quarter: 2016Q1

REPORT INFORMATION
  Report Type: Report from Study
  Country: None (occurrence: CH)
  Receive Date: 20160106
  Receipt Date: 20160114
  Transmission Date: 20160526
  Serious: Yes (Hospitalization)
  Sender: FDA-Public Use
  Company Number: CH-MEDAC PHARMA, INC.-1046214

PATIENT
  Age: 57 Year
  Sex: Male
  Weight: 101.5 kg

DRUGS (11)
  1. ATORVASTATIN CALCIUM. [Concomitant]
     Active Substance: ATORVASTATIN CALCIUM
     Route: 048
  2. VI-DE 3 [Concomitant]
     Active Substance: CHOLECALCIFEROL
     Route: 048
  3. PERFALGAN [Concomitant]
     Active Substance: ACETAMINOPHEN
     Route: 048
  4. ASPIRIN 100 [Concomitant]
     Active Substance: ASPIRIN
     Route: 048
  5. PANTOPRAZOLE [Concomitant]
     Active Substance: PANTOPRAZOLE SODIUM
     Route: 048
  6. DAFALGAN [Concomitant]
     Active Substance: ACETAMINOPHEN
  7. FOLIC ACID. [Concomitant]
     Active Substance: FOLIC ACID
     Route: 048
     Dates: start: 20131109
  8. IBUPROFEN. [Concomitant]
     Active Substance: IBUPROFEN
     Route: 048
  9. NIZORAL [Concomitant]
     Active Substance: KETOCONAZOLE
     Route: 061
  10. DAIVOBET [Concomitant]
     Active Substance: BETAMETHASONE DIPROPIONATE\CALCIPOTRIENE
     Route: 061
  11. METOJECT [Suspect]
     Active Substance: METHOTREXATE SODIUM
     Indication: PSORIATIC ARTHROPATHY
     Route: 058
     Dates: start: 20131108

REACTIONS (1)
  - Metastases to abdominal wall [Recovered/Resolved]

NARRATIVE: CASE EVENT DATE: 20151021
